FAERS Safety Report 4439488-9 (Version None)
Quarter: 2004Q3

REPORT INFORMATION
  Report Type: 
  Country: None (occurrence: None)
  Receive Date: 20040831
  Receipt Date: 20040817
  Transmission Date: 20050211
  Serious: Yes (Hospitalization)
  Sender: FDA-Public Use
  Company Number: 2004057554

PATIENT
  Age: 80 Year
  Sex: Female
  Weight: 43 kg

DRUGS (4)
  1. AMLODIPINE [Suspect]
     Indication: ESSENTIAL HYPERTENSION
     Dosage: 5 MG (5 MG, 1 IN 1 D), ORAL
     Route: 048
     Dates: start: 20040326, end: 20040501
  2. BISELECT (BISOPROLOL FUMARATE, HYDROCHLOROTHIAZIDE) [Suspect]
     Indication: ESSENTIAL HYPERTENSION
     Dosage: 1 IN 1 D, ORAL
     Route: 048
     Dates: start: 20040326, end: 20040501
  3. URAPIDIL (URAPIDIL) [Suspect]
     Indication: ESSENTIAL HYPERTENSION
     Dosage: 120 MG (6O MG, 2 IN 1 D), ORAL
     Route: 048
     Dates: start: 20040326, end: 20040501
  4. CLOPIDOGREL BISULFATE [Suspect]
     Indication: ILL-DEFINED DISORDER
     Dosage: 75 MG (75 MG, 1 IN 1 D), ORAL
     Route: 048
     Dates: start: 20040326, end: 20040501

REACTIONS (7)
  - DERMATITIS EXFOLIATIVE [None]
  - EOSINOPHILIA [None]
  - FACE OEDEMA [None]
  - LYMPHADENOPATHY [None]
  - OEDEMA PERIPHERAL [None]
  - PRURITUS [None]
  - SKIN LESION [None]
